FAERS Safety Report 14022317 (Version 1)
Quarter: 2017Q3

REPORT INFORMATION
  Report Type: Spontaneous
  Country: US (occurrence: US)
  Receive Date: 20170928
  Receipt Date: 20170928
  Transmission Date: 20171128
  Serious: Yes (Disabling, Other)
  Sender: FDA-Public Use
  Company Number: None

PATIENT
  Sex: Female
  Weight: 90 kg

DRUGS (1)
  1. MIRALAX [Suspect]
     Active Substance: POLYETHYLENE GLYCOL 3350
     Indication: CONSTIPATION
     Dosage: 1 CAPFUL; AT BEDTIME; ORAL?
     Route: 048
     Dates: start: 20050101, end: 20170927

REACTIONS (2)
  - Constipation [None]
  - Multiple sclerosis [None]

NARRATIVE: CASE EVENT DATE: 20050101
